FAERS Safety Report 7530313-6 (Version None)
Quarter: 2011Q2

REPORT INFORMATION
  Report Type: 
  Country: None (occurrence: None)
  Receive Date: 20110607
  Receipt Date: 20110601
  Transmission Date: 20111010
  Serious: Yes (Death, Hospitalization)
  Sender: FDA-Public Use
  Company Number: US-GILEAD-2011-0036062

PATIENT
  Sex: Female

DRUGS (2)
  1. LETAIRIS [Suspect]
     Indication: PULMONARY HYPERTENSION
     Route: 048
     Dates: start: 20100318, end: 20110305
  2. LETAIRIS [Suspect]
     Indication: SCLERODERMA

REACTIONS (3)
  - LUNG CANCER METASTATIC [None]
  - THROMBOSIS [None]
  - BRAIN NEOPLASM MALIGNANT [None]
